FAERS Safety Report 9290997 (Version 2)
Quarter: 2013Q3

REPORT INFORMATION
  Report Type: Report from Study
  Country: BR (occurrence: BR)
  Receive Date: 20130515
  Receipt Date: 20130816
  Transmission Date: 20140515
  Serious: Yes (Other)
  Sender: FDA-Public Use
  Company Number: PHHY2013BR048351

PATIENT
  Sex: Female
  Weight: 74 kg

DRUGS (3)
  1. DIOVAN AMLO FIX [Suspect]
     Indication: BLOOD PRESSURE ABNORMAL
     Dosage: 1 DF (320/5MG), A DAY
     Route: 048
  2. ALDOMET [Concomitant]
     Dosage: 1 DF, A DAY
     Route: 048
  3. HIGROTON [Concomitant]
     Dosage: 1 DF, DAILY
     Route: 048

REACTIONS (3)
  - Cataract [Recovering/Resolving]
  - Visual impairment [Not Recovered/Not Resolved]
  - Blood pressure increased [Recovered/Resolved]
